FAERS Safety Report 12221060 (Version 1)
Quarter: 2016Q1

REPORT INFORMATION
  Report Type: Report from Study
  Country: MX (occurrence: MX)
  Receive Date: 20160330
  Receipt Date: 20160330
  Transmission Date: 20160526
  Serious: Yes (Death, Other)
  Sender: FDA-Public Use
  Company Number: MX-EMD SERONO-7253444

PATIENT
  Age: 64 Year
  Sex: Male

DRUGS (1)
  1. SAIZEN [Suspect]
     Active Substance: SOMATROPIN
     Indication: CARDIAC DISORDER
     Route: 058
     Dates: start: 20121220

REACTIONS (5)
  - Diabetic foot [Unknown]
  - Pericardial effusion [Unknown]
  - Cardiac ventricular disorder [Unknown]
  - Off label use [Unknown]
  - Death [Fatal]

NARRATIVE: CASE EVENT DATE: 20121220
